FAERS Safety Report 6706549-0 (Version None)
Quarter: 2010Q2

REPORT INFORMATION
  Report Type: 
  Country: None (occurrence: None)
  Receive Date: 20100503
  Receipt Date: 20100429
  Transmission Date: 20101027
  Serious: Yes (Death, Hospitalization)
  Sender: FDA-Public Use
  Company Number: PHHY2010IL22846

PATIENT
  Age: 77 Year
  Sex: Female

DRUGS (1)
  1. TASIGNA [Suspect]
     Indication: CHRONIC MYELOID LEUKAEMIA
     Dosage: 200 MG, BID
     Route: 048
     Dates: start: 20090824

REACTIONS (4)
  - ABDOMINAL HERNIA OBSTRUCTIVE [None]
  - ABDOMINAL HERNIA REPAIR [None]
  - COLECTOMY [None]
  - SEPSIS [None]
